FAERS Safety Report 11751706 (Version 2)
Quarter: 2015Q4

REPORT INFORMATION
  Report Type: Spontaneous
  Country: CA (occurrence: CA)
  Receive Date: 20151118
  Receipt Date: 20151124
  Transmission Date: 20160304
  Serious: Yes (Hospitalization, Other)
  Sender: FDA-Public Use
  Company Number: CA-BAUSCH-BL-2015-027221

PATIENT
  Age: 64 Year
  Sex: Male

DRUGS (1)
  1. DILTIAZEM [Suspect]
     Active Substance: DILTIAZEM
     Indication: PRODUCT USED FOR UNKNOWN INDICATION
     Dosage: SUSTAINED-RELEASE DILTIAZEM
     Route: 048

REACTIONS (9)
  - Shock [Recovering/Resolving]
  - Generalised tonic-clonic seizure [Unknown]
  - Cardiac arrest [Unknown]
  - Tetany [Unknown]
  - Intentional overdose [Recovering/Resolving]
  - Lactic acidosis [Unknown]
  - Toxicity to various agents [Recovering/Resolving]
  - Anuria [Unknown]
  - Circulatory collapse [Unknown]
